FAERS Safety Report 5542405-1 (Version None)
Quarter: 2007Q4

REPORT INFORMATION
  Report Type: 
  Country: None (occurrence: None)
  Receive Date: 20071129
  Receipt Date: 20070717
  Transmission Date: 20080405
  Serious: Yes (Hospitalization)
  Sender: FDA-Public Use
  Company Number: US200706000937

PATIENT
  Age: 58 Year
  Sex: Female
  Weight: 118.4 kg

DRUGS (3)
  1. ZYPREXA [Suspect]
     Dosage: 5 MG, ORAL,10 MG ORAL
     Route: 048
     Dates: start: 20030201, end: 20051101
  2. ABILIFY [Concomitant]
  3. ZOLOFT [Concomitant]

REACTIONS (2)
  - DIABETES MELLITUS [None]
  - HYPERGLYCAEMIA [None]
